FAERS Safety Report 4565238-1 (Version None)
Quarter: 2005Q1

REPORT INFORMATION
  Report Type: 
  Country: None (occurrence: None)
  Receive Date: 20050124
  Receipt Date: 20050112
  Transmission Date: 20050727
  Serious: Yes (Other)
  Sender: FDA-Public Use
  Company Number: 200410395BBE

PATIENT
  Age: 48 Year
  Sex: Male

DRUGS (1)
  1. KOGENATE [Suspect]

REACTIONS (1)
  - INHIBITING ANTIBODIES [None]
